FAERS Safety Report 11912975 (Version 1)
Quarter: 2016Q1

REPORT INFORMATION
  Report Type: Spontaneous
  Country: US (occurrence: US)
  Receive Date: 20160113
  Receipt Date: 20160113
  Transmission Date: 20160526
  Serious: No
  Sender: FDA-Public Use
  Company Number: US-ELI_LILLY_AND_COMPANY-US201512009178

PATIENT
  Age: 74 Year
  Sex: Female

DRUGS (4)
  1. TRAMADOL. [Suspect]
     Active Substance: TRAMADOL
     Indication: PAIN
     Dosage: UNK, TID
     Route: 065
  2. FORTEO [Suspect]
     Active Substance: TERIPARATIDE
     Indication: OSTEOPOROSIS
     Dosage: UNK, UNKNOWN
     Route: 065
     Dates: start: 201503
  3. FORTEO [Suspect]
     Active Substance: TERIPARATIDE
     Dosage: UNK, UNKNOWN
     Route: 065
  4. NAPROXEN. [Concomitant]
     Active Substance: NAPROXEN
     Dosage: UNK, BID

REACTIONS (10)
  - Skin mass [Unknown]
  - Bursitis [Unknown]
  - Weight decreased [Unknown]
  - Memory impairment [Unknown]
  - Abasia [Unknown]
  - Hypokinesia [Unknown]
  - Confusional state [Unknown]
  - Muscle spasms [Unknown]
  - Pain in extremity [Unknown]
  - Affective disorder [Unknown]

NARRATIVE: CASE EVENT DATE: 201503
